FAERS Safety Report 4801745-1 (Version None)
Quarter: 2005Q4

REPORT INFORMATION
  Report Type: 
  Country: None (occurrence: None)
  Receive Date: 20051018
  Receipt Date: 20051010
  Transmission Date: 20060501
  Serious: Yes (Life-Threatening)
  Sender: FDA-Public Use
  Company Number: FR-JNJFOC-20051002078

PATIENT
  Age: 61 Year
  Sex: Female
  Weight: 85 kg

DRUGS (6)
  1. REMICADE [Suspect]
     Dosage: 12TH INFUSION.
     Route: 042
  2. REMICADE [Suspect]
     Indication: RHEUMATOID ARTHRITIS
     Dosage: 1ST INFUSION.
     Route: 042
  3. PROPRANOL [Concomitant]
     Indication: HYPERTENSION
     Route: 048
  4. NOVATREX [Concomitant]
     Indication: RHEUMATOID ARTHRITIS
     Route: 048
  5. TRIMETAZIDINE [Concomitant]
     Indication: ANGINA PECTORIS
     Route: 048
  6. INIPOMP [Concomitant]
     Route: 048

REACTIONS (1)
  - OVARIAN CANCER [None]
